FAERS Safety Report 7563985-0 (Version None)
Quarter: 2011Q2

REPORT INFORMATION
  Report Type: 
  Country: None (occurrence: None)
  Receive Date: 20110622
  Receipt Date: 20110607
  Transmission Date: 20111010
  Serious: Yes (Death, Life-Threatening)
  Sender: FDA-Public Use
  Company Number: US-ROCHE-783345

PATIENT
  Sex: Female

DRUGS (4)
  1. TAXOL [Suspect]
     Indication: ENDOMETRIAL CANCER
     Dosage: OVER 3 HRS ON DAY 1 FOR CYCLES 1-6
     Route: 042
     Dates: start: 20100916
  2. CARBOPLATIN [Suspect]
     Indication: ENDOMETRIAL CANCER
     Dosage: AUC: 6, OVER 30 MIN ON DAY 1 FOR CYCLES 1-6
     Route: 042
     Dates: start: 20100916
  3. BEVACIZUMAB [Suspect]
     Indication: ENDOMETRIAL CANCER
     Dosage: 30-90 MIN ON DAY 1 FOR CYCLES 1-6 (STARTING WITH CYCLE 2 FOR THOSE PTS ENETRING POST SURGERY)
     Route: 042
     Dates: start: 20100916
  4. BEVACIZUMAB [Suspect]
     Dosage: OVER 30-90 MIN ON DAY 1, MAINTENANCE THERAPY (CYCLE: 7+)
     Route: 042

REACTIONS (2)
  - LABORATORY TEST ABNORMAL [None]
  - EMBOLISM [None]
